FAERS Safety Report 9267466 (Version 1)
Quarter: 2013Q2

REPORT INFORMATION
  Report Type: Spontaneous
  Country: US (occurrence: US)
  Receive Date: 20130502
  Receipt Date: 20130502
  Transmission Date: 20140414
  Serious: No
  Sender: FDA-Public Use
  Company Number: US-ASTRAZENECA-2013SE27874

PATIENT
  Age: 82 Year
  Sex: Female
  Weight: 54.4 kg

DRUGS (2)
  1. TOPROL XL [Suspect]
     Indication: HYPERTENSION
     Route: 048
     Dates: start: 2005, end: 201303
  2. VYTORIN [Concomitant]
     Indication: BLOOD CHOLESTEROL
     Dosage: 10/40 MG DAILY
     Route: 048
     Dates: end: 2013

REACTIONS (3)
  - Headache [Unknown]
  - Therapeutic response unexpected [Unknown]
  - Therapeutic response unexpected with drug substitution [Unknown]
